FAERS Safety Report 5051396-1 (Version None)
Quarter: 2006Q3

REPORT INFORMATION
  Report Type: 
  Country: None (occurrence: None)
  Receive Date: 20060714
  Receipt Date: 20060705
  Transmission Date: 20061208
  Serious: Yes (Death)
  Sender: FDA-Public Use
  Company Number: AU-ABBOTT-06P-008-0337657-00

PATIENT

DRUGS (7)
  1. CYCLOSPORINE [Suspect]
     Indication: PROPHYLAXIS AGAINST TRANSPLANT REJECTION
  2. METHOTREXATE [Suspect]
     Indication: PROPHYLAXIS AGAINST TRANSPLANT REJECTION
     Route: 042
  3. METHOTREXATE [Suspect]
     Dosage: ON DAYS 3, 6, +/- 11
     Route: 042
  4. MYCOPHENOLATE MOFETIL [Suspect]
     Indication: PROPHYLAXIS AGAINST TRANSPLANT REJECTION
  5. MYCOPHENOLATE MOFETIL [Suspect]
     Dosage: REDUCING TO 0 OVER 30 DAYS
  6. BACTRIM [Concomitant]
     Indication: ANTIBIOTIC PROPHYLAXIS
  7. FLUCONAZOLE [Concomitant]
     Indication: ANTIFUNGAL PROPHYLAXIS
     Dosage: EITHER INTRAVENOUSLY OR ORALLY

REACTIONS (1)
  - BACTERIAL SEPSIS [None]
